FAERS Safety Report 11898852 (Version 2)
Quarter: 2016Q1

REPORT INFORMATION
  Report Type: Spontaneous
  Country: JP (occurrence: JP)
  Receive Date: 20160108
  Receipt Date: 20160121
  Transmission Date: 20160526
  Serious: No
  Sender: FDA-Public Use
  Company Number: JP-CONCORDIA PHARMACEUTICALS INC.-CO-ZO-JP-2015-092

PATIENT
  Age: 45 Year
  Sex: Male

DRUGS (1)
  1. ZONISAMIDE. [Suspect]
     Active Substance: ZONISAMIDE
     Indication: EPILEPSY
     Route: 048
     Dates: start: 2003, end: 20151225

REACTIONS (1)
  - Calculus urinary [Recovered/Resolved]

NARRATIVE: CASE EVENT DATE: 20151110
